FAERS Safety Report 18570381 (Version 1)
Quarter: 2020Q4

REPORT INFORMATION
  Report Type: Report from Study
  Country: GB (occurrence: GB)
  Receive Date: 20201202
  Receipt Date: 20201202
  Transmission Date: 20210114
  Serious: Yes (Other)
  Sender: FDA-Public Use
  Company Number: GB-GW PHARMA-202010GBGW03635

PATIENT

DRUGS (4)
  1. EPIDIOLEX [Suspect]
     Active Substance: CANNABIDIOL
     Dosage: UPTITRATION UP TO 750 MG BID
     Route: 048
     Dates: start: 20200929, end: 20201007
  2. EPIDIOLEX [Suspect]
     Active Substance: CANNABIDIOL
     Indication: CLINICAL TRIAL PARTICIPANT
     Dosage: 3.5 MG/KG/DAY, 250 MILLIGRAM, QD
     Route: 048
     Dates: start: 20200927, end: 20200928
  3. EPIDIOLEX [Suspect]
     Active Substance: CANNABIDIOL
     Dosage: 21.3 MG/KG/DAY, 750 MILLIGRAM, BID
     Route: 048
     Dates: start: 20201008, end: 20201020
  4. BUPROPION. [Suspect]
     Active Substance: BUPROPION
     Indication: CLINICAL TRIAL PARTICIPANT
     Dosage: 150 MILLIGRAM, SINGLE
     Route: 048
     Dates: start: 20200924, end: 20200924

REACTIONS (1)
  - Hepatic enzyme increased [Recovered/Resolved]

NARRATIVE: CASE EVENT DATE: 20201020
